FAERS Safety Report 17312930 (Version 1)
Quarter: 2020Q1

REPORT INFORMATION
  Report Type: Spontaneous
  Country: US (occurrence: US)
  Receive Date: 20200124
  Receipt Date: 20200124
  Transmission Date: 20200409
  Serious: Yes (Other)
  Sender: FDA-Public Use
  Company Number: US-TAKEDA-2020TUS004359

PATIENT
  Age: 76 Year
  Sex: Female

DRUGS (6)
  1. TRIAMTERENE AND HYDROCHLOROTHIAZIDE [Concomitant]
     Active Substance: HYDROCHLOROTHIAZIDE\TRIAMTERENE
     Indication: HYPERTENSION
     Dosage: 37.5/25 MILLIGRAM
     Route: 065
  2. ULORIC [Suspect]
     Active Substance: FEBUXOSTAT
     Indication: BLOOD URIC ACID INCREASED
     Dosage: 40 MILLIGRAM, QD
     Route: 065
  3. ULORIC [Suspect]
     Active Substance: FEBUXOSTAT
     Indication: GOUT
  4. DULOXETINE. [Concomitant]
     Active Substance: DULOXETINE
     Indication: NEURALGIA
     Dosage: 30 MILLIGRAM, QD
     Route: 065
  5. CARVEDILOL. [Concomitant]
     Active Substance: CARVEDILOL
     Indication: HYPERTENSION
     Dosage: 3.125 MILLIGRAM, TID
     Route: 065
  6. ATENOLOL. [Concomitant]
     Active Substance: ATENOLOL
     Indication: HYPERTENSION
     Dosage: UNK
     Route: 065

REACTIONS (2)
  - Fall [Unknown]
  - Pelvic fracture [Unknown]

NARRATIVE: CASE EVENT DATE: 20191217
